FAERS Safety Report 17424140 (Version 1)
Quarter: 2020Q1

REPORT INFORMATION
  Report Type: Report from Study
  Country: FR (occurrence: FR)
  Receive Date: 20200217
  Receipt Date: 20200217
  Transmission Date: 20200409
  Serious: Yes (Other)
  Sender: FDA-Public Use
  Company Number: FR-ROCHE-2545148

PATIENT

DRUGS (1)
  1. CAPECITABINE. [Suspect]
     Active Substance: CAPECITABINE
     Indication: NEOPLASM MALIGNANT
     Route: 065

REACTIONS (5)
  - Skin disorder [Unknown]
  - Gastrointestinal disorder [Unknown]
  - Cardiac disorder [Unknown]
  - Blood disorder [Unknown]
  - Lymphatic disorder [Unknown]
